FAERS Safety Report 20590184 (Version 1)
Quarter: 2022Q1

REPORT INFORMATION
  Report Type: Spontaneous
  Country: US (occurrence: None)
  Receive Date: 20220312
  Receipt Date: 20220312
  Transmission Date: 20220423
  Serious: Yes (Disabling)
  Sender: FDA-Public Use
  Company Number: None

PATIENT
  Age: 56 Year
  Sex: Female
  Weight: 52.2 kg

DRUGS (4)
  1. SUBOXONE [Suspect]
     Active Substance: BUPRENORPHINE HYDROCHLORIDE\NALOXONE HYDROCHLORIDE
     Indication: Drug dependence
     Dosage: OTHER QUANTITY : 1 ONE;?FREQUENCY : DAILY;?
     Route: 060
     Dates: start: 20170801, end: 20200801
  2. ALBUTEROL [Concomitant]
     Active Substance: ALBUTEROL
  3. CLONIDINE [Concomitant]
     Active Substance: CLONIDINE
  4. VITAMINS [Concomitant]
     Active Substance: VITAMINS

REACTIONS (2)
  - Tooth loss [None]
  - Tooth disorder [None]

NARRATIVE: CASE EVENT DATE: 20150101
